FAERS Safety Report 7443234-4 (Version None)
Quarter: 2011Q2

REPORT INFORMATION
  Report Type: 
  Country: None (occurrence: None)
  Receive Date: 20110428
  Receipt Date: 20110419
  Transmission Date: 20111010
  Serious: Yes (Disabling)
  Sender: FDA-Public Use
  Company Number: B0714900A

PATIENT
  Sex: Female
  Weight: 14 kg

DRUGS (7)
  1. ALKERAN [Suspect]
     Indication: STEM CELL TRANSPLANT
     Dosage: 70MGM2 PER DAY
     Route: 042
     Dates: start: 20041120, end: 20041122
  2. TACROLIMUS HYDRATE [Concomitant]
     Indication: IMMUNOSUPPRESSION
     Dosage: .28MG PER DAY
     Route: 065
     Dates: start: 20041124
  3. VICCLOX [Concomitant]
     Dosage: 65MG PER DAY
     Route: 042
     Dates: start: 20041116, end: 20041229
  4. FRAGMIN [Concomitant]
     Dosage: 5000IU PER DAY
     Dates: end: 20041227
  5. METHOTREXATE [Concomitant]
     Indication: IMMUNOSUPPRESSION
     Dosage: 10MGM2 PER DAY
     Route: 065
     Dates: start: 20041126, end: 20041201
  6. KYTRIL [Concomitant]
     Dosage: 6MG PER DAY
     Dates: end: 20041126
  7. FIRSTCIN [Concomitant]
     Dosage: 3G PER DAY
     Dates: end: 20041122

REACTIONS (2)
  - C-REACTIVE PROTEIN INCREASED [None]
  - PYREXIA [None]
